FAERS Safety Report 9338963 (Version 1)
Quarter: 2013Q2

REPORT INFORMATION
  Report Type: Spontaneous
  Country: US (occurrence: US)
  Receive Date: 20130610
  Receipt Date: 20130610
  Transmission Date: 20140414
  Serious: Yes (Hospitalization, Other)
  Sender: FDA-Public Use
  Company Number: US-PFIZER INC-2013174290

PATIENT
  Age: 62 Year
  Sex: Female
  Weight: 80.27 kg

DRUGS (3)
  1. LYRICA [Suspect]
     Indication: NERVE COMPRESSION
     Dosage: 150 MG (75MG X 2) , 1X/DAY
     Route: 048
     Dates: start: 2008, end: 2012
  2. SYNTHROID [Concomitant]
     Indication: THYROID DISORDER
     Dosage: UNK
  3. WELLBATRIN [Concomitant]
     Indication: DEPRESSION
     Dosage: UNK

REACTIONS (3)
  - Sepsis [Recovering/Resolving]
  - Kidney infection [Recovering/Resolving]
  - Cystitis [Recovering/Resolving]
